APPROVED DRUG PRODUCT: LEVOFLOXACIN IN DEXTROSE 5% IN PLASTIC CONTAINER
Active Ingredient: LEVOFLOXACIN
Strength: EQ 750MG/150ML (EQ 5MG/ML)
Dosage Form/Route: INJECTABLE;INJECTION
Application: A091397 | Product #003
Applicant: BAXTER HEALTHCARE CORP
Approved: Aug 8, 2013 | RLD: No | RS: No | Type: DISCN